FAERS Safety Report 4712115-9 (Version None)
Quarter: 2005Q2

REPORT INFORMATION
  Report Type: 
  Country: None (occurrence: None)
  Receive Date: 20050629
  Receipt Date: 20050325
  Transmission Date: 20051028
  Serious: No
  Sender: FDA-Public Use
  Company Number: 05P-163-0295147-00

PATIENT
  Age: 58 Year
  Sex: Female

DRUGS (3)
  1. HUMIRA [Suspect]
     Indication: RHEUMATOID ARTHRITIS
     Dosage: 40 MG,1 IN 2  WK, SUBCUTANEOUS
     Route: 058
     Dates: start: 20050225
  2. LEFLUNOMIDE [Concomitant]
  3. CORTISONE ACETATE TAB [Concomitant]

REACTIONS (2)
  - INJECTION SITE HAEMORRHAGE [None]
  - INJECTION SITE SWELLING [None]
